FAERS Safety Report 5201173-3 (Version None)
Quarter: 2007Q1

REPORT INFORMATION
  Report Type: 
  Country: None (occurrence: None)
  Receive Date: 20070103
  Receipt Date: 20061227
  Transmission Date: 20070707
  Serious: Yes (Death, Hospitalization)
  Sender: FDA-Public Use
  Company Number: E2090-00095-CLI-JP

PATIENT
  Age: 79 Year
  Sex: Male

DRUGS (15)
  1. ZONEGRAN [Suspect]
     Indication: PARKINSON'S DISEASE
     Dosage: SEE IMAGE
     Route: 048
     Dates: start: 20050115, end: 20050701
  2. ZONEGRAN [Suspect]
     Indication: PARKINSON'S DISEASE
     Dosage: SEE IMAGE
     Route: 048
     Dates: start: 20050702, end: 20060210
  3. ZONEGRAN [Suspect]
     Indication: PARKINSON'S DISEASE
     Dosage: SEE IMAGE
     Route: 048
     Dates: start: 20060211, end: 20060324
  4. ZONEGRAN [Suspect]
     Indication: PARKINSON'S DISEASE
     Dosage: SEE IMAGE
     Route: 048
     Dates: start: 20060325, end: 20060918
  5. RISPERDAL [Suspect]
     Indication: ABNORMAL BEHAVIOUR
     Dosage: 2 MG, ORAL
     Route: 048
     Dates: start: 20060916, end: 20060918
  6. PARLODEL [Concomitant]
  7. NEODOPASOL (MADOPAR) [Concomitant]
  8. DOPS (DROXIDOPA) [Concomitant]
  9. ARTANE [Concomitant]
  10. CABERGOLINE [Concomitant]
  11. SEDIEL (TANDOSPIRONE CITRATE) [Concomitant]
  12. EVIPROSTAT [Concomitant]
  13. MASHI-NIN-GAN [Concomitant]
  14. FRANDOL TAPE-S (ISOSORBIDE DINITRATE) [Concomitant]
  15. S M POWDER (S.M. POWDER) [Concomitant]

REACTIONS (24)
  - ABNORMAL BEHAVIOUR [None]
  - AGGRESSION [None]
  - ANAEMIA [None]
  - APHAGIA [None]
  - BODY TEMPERATURE DECREASED [None]
  - CREPITATIONS [None]
  - DEPRESSED LEVEL OF CONSCIOUSNESS [None]
  - DYSPHAGIA [None]
  - DYSURIA [None]
  - HALLUCINATION [None]
  - HEART RATE DECREASED [None]
  - INFECTION [None]
  - MALNUTRITION [None]
  - MULTI-ORGAN FAILURE [None]
  - PLEURAL EFFUSION [None]
  - PNEUMONIA [None]
  - PNEUMONIA ASPIRATION [None]
  - PYREXIA [None]
  - RENAL FAILURE [None]
  - RESPIRATORY FAILURE [None]
  - SEDATION [None]
  - SPUTUM CULTURE POSITIVE [None]
  - STAPHYLOCOCCAL INFECTION [None]
  - WHEEZING [None]
